FAERS Safety Report 4962955-6 (Version None)
Quarter: 2006Q2

REPORT INFORMATION
  Report Type: 
  Country: None (occurrence: None)
  Receive Date: 20060405
  Receipt Date: 20060327
  Transmission Date: 20061013
  Serious: Yes (Hospitalization)
  Sender: FDA-Public Use
  Company Number: US-AMGEN-US174193

PATIENT
  Sex: Female

DRUGS (11)
  1. PROCRIT [Suspect]
     Indication: ANAEMIA
     Route: 058
  2. INSULIN [Concomitant]
  3. LISINOPRIL [Concomitant]
  4. CLONIDINE [Concomitant]
  5. NORVASC [Concomitant]
  6. COLCHICINE [Concomitant]
  7. CYCLOBENZAPRINE HCL [Concomitant]
  8. BUMETANIDE [Concomitant]
  9. EFFEXOR [Concomitant]
  10. ALLOPURINOL [Concomitant]
  11. CATAPRES-TTS-1 [Concomitant]

REACTIONS (1)
  - INFECTION [None]
